FAERS Safety Report 8960645 (Version 2)
Quarter: 2013Q1

REPORT INFORMATION
  Report Type: Spontaneous
  Country: US (occurrence: US)
  Receive Date: 20121212
  Receipt Date: 20130314
  Transmission Date: 20140127
  Serious: Yes (Hospitalization, Other)
  Sender: FDA-Public Use
  Company Number: US-PFIZER INC-2012309137

PATIENT
  Age: 58 Year
  Sex: Female
  Weight: 53.06 kg

DRUGS (28)
  1. VFEND [Suspect]
     Indication: BRONCHOPULMONARY ASPERGILLOSIS
     Dosage: 200 MG, 2X/DAY
     Dates: start: 20120710
  2. VFEND [Suspect]
     Dosage: 300 MG, 2X/DAY
     Dates: start: 2012
  3. VFEND [Suspect]
     Dosage: ONE AND A HALF TABLET 200MG
  4. VFEND [Suspect]
     Dosage: 50 MG, UNK
     Dates: start: 201302
  5. SINGULAIR [Concomitant]
     Dosage: UNK
  6. NEURONTIN [Concomitant]
     Dosage: UNK
  7. METOPROLOL [Concomitant]
     Dosage: UNK
  8. PROZAC [Concomitant]
     Dosage: UNK
  9. WELLBUTRIN [Concomitant]
     Dosage: UNK
  10. PROTONIX [Concomitant]
     Dosage: UNK
  11. ASPIRIN [Concomitant]
     Dosage: 81 MG, UNK
  12. ACIPHEX [Concomitant]
     Dosage: UNK
  13. CALCIUM [Concomitant]
     Dosage: UNK
  14. IRON [Concomitant]
     Dosage: UNK
  15. FIBERMED [Concomitant]
     Dosage: UNK
  16. VITAMIN E [Concomitant]
     Dosage: UNK
  17. PRAVASTATIN [Concomitant]
     Dosage: UNK
  18. DOXYCYCLINE [Concomitant]
     Dosage: UNK
  19. LASIX [Concomitant]
     Dosage: UNK
  20. LIDOCAINE [Concomitant]
     Dosage: UNK
  21. ZOFRAN [Concomitant]
     Dosage: UNK
  22. VICODIN [Concomitant]
     Dosage: UNK
  23. BUSPAR [Concomitant]
     Dosage: UNK
  24. VENTOLIN [Concomitant]
     Dosage: UNK
  25. SYMBICORT [Concomitant]
     Indication: ASTHMA
     Dosage: UNK
  26. FLONASE [Concomitant]
     Indication: SINUS DISORDER
     Dosage: UNK
  27. IVEGA [Concomitant]
     Indication: IMMUNODEFICIENCY
     Dosage: UNK
  28. JANTOVEN [Concomitant]
     Indication: ASTHMA
     Dosage: UNK

REACTIONS (6)
  - Pneumonia [Recovering/Resolving]
  - Wrong technique in drug usage process [Unknown]
  - Drug dispensing error [Unknown]
  - Drug level changed [Unknown]
  - Malabsorption [Unknown]
  - Fluid retention [Unknown]
